FAERS Safety Report 10707047 (Version 1)
Quarter: 2015Q1

REPORT INFORMATION
  Report Type: Spontaneous
  Country: US (occurrence: US)
  Receive Date: 20150113
  Receipt Date: 20150113
  Transmission Date: 20150721
  Serious: No
  Sender: FDA-Public Use
  Company Number: US-TEVA-533204USA

PATIENT
  Sex: Female
  Weight: 27.24 kg

DRUGS (5)
  1. DURAGESIC [Suspect]
     Active Substance: FENTANYL
  2. NUCYNTA [Suspect]
     Active Substance: TAPENTADOL HYDROCHLORIDE
  3. ACTIQ [Suspect]
     Active Substance: FENTANYL CITRATE
     Indication: PAIN
     Dosage: 600 MCG AND 800 MCG
     Route: 048
  4. ACTIQ [Suspect]
     Active Substance: FENTANYL CITRATE
     Indication: FIBROMYALGIA
  5. ACTIQ [Suspect]
     Active Substance: FENTANYL CITRATE
     Indication: INTERVERTEBRAL DISC PROTRUSION

REACTIONS (5)
  - Constipation [Unknown]
  - Pain [Unknown]
  - Product use issue [Unknown]
  - Depressed mood [Unknown]
  - Rectal prolapse [Unknown]
